FAERS Safety Report 8976119 (Version 1)
Quarter: 2012Q4

REPORT INFORMATION
  Report Type: 
  Country: US (occurrence: US)
  Receive Date: 20121219
  Receipt Date: 20121219
  Transmission Date: 20130627
  Serious: No
  Sender: FDA-Public Use
  Company Number: US-AMGEN-USASP2012067138

PATIENT
  Age: 70 Year
  Sex: Female

DRUGS (5)
  1. PROLIA [Suspect]
     Indication: OSTEOPOROSIS POSTMENOPAUSAL
     Dosage: 60 mg, q6mo
     Dates: start: 20120810
  2. NORVASC [Concomitant]
     Dosage: 5 mg, UNK
  3. BUPROPION [Concomitant]
  4. CALCIUM [Concomitant]
     Dosage: UNK UNK, bid
  5. VITAMIN D3 [Concomitant]
     Dosage: 2000 IU, qd

REACTIONS (6)
  - Oedema peripheral [Unknown]
  - Injection site bruising [Unknown]
  - Blister [Unknown]
  - Thrombosis [Unknown]
  - Vein disorder [Unknown]
  - Pain in extremity [Unknown]
